FAERS Safety Report 8556229-4 (Version None)
Quarter: 2012Q3

REPORT INFORMATION
  Report Type: 
  Country: None (occurrence: None)
  Receive Date: 20120801
  Receipt Date: 20120724
  Transmission Date: 20120928
  Serious: Yes (Hospitalization)
  Sender: FDA-Public Use
  Company Number: US-US-EMD SERONO, INC.-7137580

PATIENT
  Sex: Female

DRUGS (4)
  1. LIPITOR [Concomitant]
     Indication: PRODUCT USED FOR UNKNOWN INDICATION
     Dates: end: 20111001
  2. REBIF [Suspect]
     Indication: MULTIPLE SCLEROSIS
     Route: 058
     Dates: end: 20111101
  3. TYLENOL (CAPLET) [Concomitant]
     Indication: PREMEDICATION
  4. REBIF [Suspect]
     Route: 058
     Dates: start: 20120305

REACTIONS (4)
  - HEPATIC ENZYME INCREASED [None]
  - FIBROCYSTIC BREAST DISEASE [None]
  - CHILLS [None]
  - UTERINE LEIOMYOMA [None]
